FAERS Safety Report 10065193 (Version 2)
Quarter: 2014Q2

REPORT INFORMATION
  Report Type: Spontaneous
  Country: US (occurrence: None)
  Receive Date: 20140404
  Receipt Date: 20140425
  Transmission Date: 20141212
  Serious: Yes (Death, Other)
  Sender: FDA-Public Use
  Company Number: UTC-046540

PATIENT
  Age: 44 Year
  Sex: Male
  Weight: 90.71 kg

DRUGS (3)
  1. REMODULIN [Suspect]
     Indication: COR PULMONALE CHRONIC
     Dosage: 74.16 UG/KG (0.0515 UG/KG, 1 IN 1 MIN), SUBCUTANEOUS
     Dates: start: 20110118
  2. VIAGRA (SILDENAFIL) [Concomitant]
  3. LETAIRIS (AMBRISENTAN) [Concomitant]

REACTIONS (13)
  - Condition aggravated [None]
  - Hepatic function abnormal [None]
  - Liver disorder [None]
  - Renal impairment [None]
  - Asthenia [None]
  - Fatigue [None]
  - Somnolence [None]
  - Decreased appetite [None]
  - Device malfunction [None]
  - Cor pulmonale chronic [None]
  - Hypoxia [None]
  - Weight decreased [None]
  - Pulmonary arterial hypertension [None]
